FAERS Safety Report 7200168-8 (Version None)
Quarter: 2010Q4

REPORT INFORMATION
  Report Type: 
  Country: None (occurrence: None)
  Receive Date: 20101204
  Receipt Date: 20101202
  Transmission Date: 20110411
  Serious: Yes (Hospitalization)
  Sender: FDA-Public Use
  Company Number: 2010S1000391

PATIENT
  Age: 37 Year
  Sex: Female

DRUGS (7)
  1. DARVOCET-N 100 [Suspect]
     Indication: PAIN
     Dosage: 100 MG; QID; PO
     Route: 048
     Dates: start: 20020101, end: 20101201
  2. FLEXERIL [Suspect]
     Indication: PAIN
     Dates: start: 20020101, end: 20100601
  3. . [Concomitant]
  4. . [Concomitant]
  5. . [Concomitant]
  6. . [Concomitant]
  7. . [Concomitant]

REACTIONS (5)
  - ABDOMINAL PAIN UPPER [None]
  - CHEST PAIN [None]
  - HEART RATE INCREASED [None]
  - NAUSEA [None]
  - PALPITATIONS [None]
